FAERS Safety Report 4315612-3 (Version None)
Quarter: 2004Q1

REPORT INFORMATION
  Report Type: 
  Country: None (occurrence: None)
  Receive Date: 20040310
  Receipt Date: 20040301
  Transmission Date: 20041129
  Serious: Yes (Death)
  Sender: FDA-Public Use
  Company Number: NSADSS2002040657

PATIENT
  Age: 60 Year
  Sex: Female

DRUGS (5)
  1. DURAGESIC [Suspect]
     Indication: PAIN
     Dosage: SEE IMAGE
     Route: 062
     Dates: start: 20021001, end: 20021022
  2. DURAGESIC [Suspect]
     Indication: PAIN
     Dosage: SEE IMAGE
     Route: 062
     Dates: start: 20021022
  3. OXYCONTIN [Concomitant]
  4. PERCOCET [Concomitant]
  5. MIRALAX [Concomitant]

REACTIONS (15)
  - AGITATION [None]
  - ANXIETY [None]
  - CHILLS [None]
  - CONFUSIONAL STATE [None]
  - DISORIENTATION [None]
  - HYPOXIA [None]
  - LOBAR PNEUMONIA [None]
  - METASTASES TO CENTRAL NERVOUS SYSTEM [None]
  - METASTATIC NEOPLASM [None]
  - NAUSEA [None]
  - PUPIL FIXED [None]
  - PYREXIA [None]
  - RESPIRATORY ARREST [None]
  - RESPIRATORY DISTRESS [None]
  - VOMITING [None]
